FAERS Safety Report 5338617-2 (Version None)
Quarter: 2007Q2

REPORT INFORMATION
  Report Type: 
  Country: None (occurrence: None)
  Receive Date: 20070530
  Receipt Date: 20070525
  Transmission Date: 20071010
  Serious: Yes (Death)
  Sender: FDA-Public Use
  Company Number: US-BRISTOL-MYERS SQUIBB COMPANY-13794029

PATIENT
  Sex: Male

DRUGS (3)
  1. COUMADIN [Suspect]
  2. LOPRESSOR [Suspect]
  3. COMBIVENT [Suspect]

REACTIONS (1)
  - SHOCK [None]
